FAERS Safety Report 12667686 (Version 1)
Quarter: 2016Q3

REPORT INFORMATION
  Report Type: Spontaneous
  Country: ZA (occurrence: ZA)
  Receive Date: 20160819
  Receipt Date: 20160819
  Transmission Date: 20161109
  Serious: Yes (Other)
  Sender: FDA-Public Use
  Company Number: PHHY2016ZA112824

PATIENT
  Age: 40 Year
  Sex: Female

DRUGS (1)
  1. TRAMAHEXAL [Suspect]
     Active Substance: TRAMADOL HYDROCHLORIDE
     Indication: HEADACHE
     Route: 048

REACTIONS (4)
  - Paralysis [Unknown]
  - Seizure [Unknown]
  - Cerebrovascular accident [Unknown]
  - Coma [Unknown]

NARRATIVE: CASE EVENT DATE: 20151014
